FAERS Safety Report 5526529-0 (Version None)
Quarter: 2007Q4

REPORT INFORMATION
  Report Type: 
  Country: None (occurrence: None)
  Receive Date: 20071121
  Receipt Date: 20071121
  Transmission Date: 20080405
  Serious: Yes (Other)
  Sender: FDA-Public Use
  Company Number: None

PATIENT
  Age: 41 Year
  Sex: Female
  Weight: 81.6475 kg

DRUGS (1)
  1. VICKS NYQUIL COLD/FLU LIQUICAPS   2 LIQUICAPS  PROCTOR AND GAMBLE [Suspect]
     Indication: NASOPHARYNGITIS
     Dosage: 1 TOOK 1/2 A DOSE OF 1 LIQUICAP  2 TIMES  PO
     Route: 048
     Dates: start: 20071118, end: 20071119

REACTIONS (1)
  - PRURITUS GENERALISED [None]
